FAERS Safety Report 8622326-8 (Version None)
Quarter: 2012Q3

REPORT INFORMATION
  Report Type: 
  Country: None (occurrence: None)
  Receive Date: 20120827
  Receipt Date: 20120816
  Transmission Date: 20120928
  Serious: Yes (Hospitalization)
  Sender: FDA-Public Use
  Company Number: DE-BIOGENIDEC-2012BI032030

PATIENT
  Age: 43 Year
  Sex: Female

DRUGS (3)
  1. MORPHINE [Concomitant]
     Indication: ANKYLOSING SPONDYLITIS
  2. AVONEX [Suspect]
     Indication: MULTIPLE SCLEROSIS
     Route: 030
     Dates: start: 20001201
  3. MORPHINE [Concomitant]
     Indication: ANALGESIC THERAPY

REACTIONS (5)
  - OVARIAN NEOPLASM [None]
  - POST PROCEDURAL INFECTION [None]
  - INTESTINAL OBSTRUCTION [None]
  - HIP SURGERY [None]
  - IMPAIRED HEALING [None]
